FAERS Safety Report 5146812-0 (Version None)
Quarter: 2006Q4

REPORT INFORMATION
  Report Type: 
  Country: None (occurrence: None)
  Receive Date: 20061102
  Receipt Date: 20061017
  Transmission Date: 20070319
  Serious: Yes (Other)
  Sender: FDA-Public Use
  Company Number: 2006132425

PATIENT
  Sex: Female

DRUGS (1)
  1. VIAGRA [Suspect]
     Dosage: 300 MG (100 MG)

REACTIONS (2)
  - IMMUNOSUPPRESSION [None]
  - UNEVALUABLE EVENT [None]
